FAERS Safety Report 9956626 (Version 1)
Quarter: 2014Q1

REPORT INFORMATION
  Report Type: Report from Study
  Country: US (occurrence: US)
  Receive Date: 20140304
  Receipt Date: 20140304
  Transmission Date: 20141002
  Serious: No
  Sender: FDA-Public Use
  Company Number: US-ABBVIE-13P-163-1099029-00

PATIENT
  Age: 22 Year
  Sex: Male

DRUGS (7)
  1. HUMIRA [Suspect]
     Indication: CROHN^S DISEASE
     Dates: start: 20130516, end: 20130516
  2. HUMIRA [Suspect]
     Dates: start: 20130530
  3. LORTAB [Concomitant]
     Indication: PAIN
     Dosage: BID
  4. XANAX [Concomitant]
     Indication: PANIC ATTACK
     Dosage: BID
  5. XANAX [Concomitant]
     Indication: ANGER
  6. HYOSCYAMINE [Concomitant]
     Indication: ABDOMINAL PAIN UPPER
  7. PROAIR [Concomitant]
     Indication: ASTHMA
     Route: 055

REACTIONS (2)
  - Injection site pain [Recovered/Resolved]
  - Injection site swelling [Recovered/Resolved]
